FAERS Safety Report 4513151-8 (Version None)
Quarter: 2004Q4

REPORT INFORMATION
  Report Type: 
  Country: None (occurrence: None)
  Receive Date: 20041130
  Receipt Date: 20030605
  Transmission Date: 20050328
  Serious: Yes (Hospitalization, Disabling, Other)
  Sender: FDA-Public Use
  Company Number: US-MERCK-0306USA00635

PATIENT
  Age: 51 Year
  Sex: Female
  Weight: 66 kg

DRUGS (1)
  1. VIOXX [Suspect]
     Indication: OSTEOARTHRITIS
     Route: 048

REACTIONS (27)
  - ADVERSE EVENT [None]
  - ANXIETY [None]
  - BRONCHITIS [None]
  - CARDIOVASCULAR DISORDER [None]
  - CHRONIC OBSTRUCTIVE AIRWAYS DISEASE [None]
  - DENTAL CARIES [None]
  - DEPRESSION [None]
  - DIABETES MELLITUS [None]
  - DYSPNOEA [None]
  - FAECALOMA [None]
  - FALL [None]
  - GASTROOESOPHAGEAL REFLUX DISEASE [None]
  - HERPES ZOSTER [None]
  - HIATUS HERNIA [None]
  - HYPOKALAEMIA [None]
  - LOBAR PNEUMONIA [None]
  - LOCALISED OSTEOARTHRITIS [None]
  - OEDEMA PERIPHERAL [None]
  - OSTEOPOROSIS [None]
  - PANIC ATTACK [None]
  - PNEUMONIA [None]
  - POLYTRAUMATISM [None]
  - SCHIZOPHRENIA, PARANOID TYPE [None]
  - SINUS BRADYCARDIA [None]
  - SUPRAVENTRICULAR TACHYCARDIA [None]
  - TOOTH DISORDER [None]
  - WOUND INFECTION [None]
